FAERS Safety Report 4467821-0 (Version None)
Quarter: 2004Q4

REPORT INFORMATION
  Report Type: 
  Country: None (occurrence: None)
  Receive Date: 20041004
  Receipt Date: 20040913
  Transmission Date: 20050328
  Serious: Yes (Other)
  Sender: FDA-Public Use
  Company Number: 8862

PATIENT
  Age: 55 Year
  Sex: Male

DRUGS (5)
  1. METHOTREXATE [Suspect]
     Indication: GASTRIC CANCER
     Dosage: 50 MG DAILY IV
     Route: 042
     Dates: start: 20030909, end: 20031024
  2. FLUOROURACIL [Suspect]
     Indication: GASTRIC CANCER
     Dosage: 500 MG DAILY IV
     Route: 042
     Dates: start: 20030909, end: 20031024
  3. SAXIZON [Suspect]
     Indication: GASTRIC CANCER
     Dosage: 300 MG DAILY IV
     Route: 042
     Dates: start: 20030909, end: 20031024
  4. LEUCOVORIN CALCIUM [Concomitant]
  5. DIAMOX [Concomitant]

REACTIONS (4)
  - ANTI-HBE ANTIBODY POSITIVE [None]
  - CONDITION AGGRAVATED [None]
  - HEPATITIS B [None]
  - HEPATITIS B SURFACE ANTIGEN POSITIVE [None]
